FAERS Safety Report 21612269 (Version 2)
Quarter: 2023Q1

REPORT INFORMATION
  Report Type: Report from Study
  Country: US (occurrence: US)
  Receive Date: 20221118
  Receipt Date: 20230117
  Transmission Date: 20230418
  Serious: No
  Sender: FDA-Public Use
  Company Number: US-ABBVIE-22K-163-4522282-00

PATIENT
  Sex: Female

DRUGS (3)
  1. HUMIRA [Suspect]
     Active Substance: ADALIMUMAB
     Indication: Psoriasis
     Dosage: CITRATE FREE?FORM STRENGTH: 80 MG?FREQUENCY TEXT: DAY 1
     Route: 058
  2. HUMIRA [Suspect]
     Active Substance: ADALIMUMAB
     Indication: Psoriatic arthropathy
     Dosage: CITRATE FREE?FORM STRENGTH: 80 MG? FREQUENCY TEXT: DAY 8
     Route: 058
  3. vicks [Concomitant]
     Indication: Product used for unknown indication

REACTIONS (8)
  - Psoriasis [Recovering/Resolving]
  - Alopecia [Not Recovered/Not Resolved]
  - Gingival bleeding [Unknown]
  - Emotional distress [Unknown]
  - Oropharyngeal pain [Unknown]
  - Blister [Unknown]
  - Onychoclasis [Unknown]
  - Nail growth abnormal [Unknown]
